FAERS Safety Report 4390711-9 (Version None)
Quarter: 2004Q3

REPORT INFORMATION
  Report Type: 
  Country: None (occurrence: None)
  Receive Date: 20040701
  Receipt Date: 20040628
  Transmission Date: 20050211
  Serious: Yes (Death)
  Sender: FDA-Public Use
  Company Number: 2004-BP-04808RO

PATIENT
  Age: 45 Year
  Sex: Female

DRUGS (11)
  1. CODEINE SUL TAB [Suspect]
     Indication: PAIN
  2. OXYCONTIN [Suspect]
     Indication: PAIN
  3. PROZAC [Suspect]
     Indication: BIPOLAR DISORDER
     Dosage: 40 MG
  4. PERCOCET [Suspect]
     Indication: PAIN
  5. DIAZEPAM [Suspect]
     Dosage: 40 MG (10 MG), PO
     Route: 048
  6. TEMAZEPAM [Suspect]
  7. OXAZEPAM [Suspect]
  8. TRAZODONE HCL [Concomitant]
  9. REMERON [Concomitant]
  10. DEPAKOTE [Concomitant]
  11. SEROQUEL [Concomitant]

REACTIONS (3)
  - ACCIDENT [None]
  - ADVERSE DRUG REACTION [None]
  - DRUG TOXICITY [None]
